FAERS Safety Report 5752894-5 (Version None)
Quarter: 2008Q2

REPORT INFORMATION
  Report Type: 
  Country: None (occurrence: None)
  Receive Date: 20080529
  Receipt Date: 20080526
  Transmission Date: 20081010
  Serious: Yes (Hospitalization, Disabling)
  Sender: FDA-Public Use
  Company Number: JP-BOEHRINGER INGELHEIM GMBH, GERMANY-2008-BP-07114NB

PATIENT
  Sex: Male
  Weight: 55 kg

DRUGS (2)
  1. MICARDIS [Suspect]
     Indication: HYPERTENSION
     Route: 048
     Dates: start: 20060401
  2. AMLODIN [Concomitant]
     Indication: HYPERTENSION
     Route: 048
     Dates: start: 20060201, end: 20060908

REACTIONS (1)
  - AMYOTROPHIC LATERAL SCLEROSIS [None]
